FAERS Safety Report 21211979 (Version 2)
Quarter: 2023Q2

REPORT INFORMATION
  Report Type: Report from Study
  Country: US (occurrence: US)
  Receive Date: 20220815
  Receipt Date: 20230630
  Transmission Date: 20230722
  Serious: Yes (Death, Other)
  Sender: FDA-Public Use
  Company Number: US-GW PHARMA-2022-US-026732

PATIENT
  Sex: Male

DRUGS (8)
  1. EPIDIOLEX [Suspect]
     Active Substance: CANNABIDIOL
     Indication: Partial seizures
     Dosage: 2.8 MILLILITER, BID, DAILY
  2. EPIDIOLEX [Suspect]
     Active Substance: CANNABIDIOL
     Indication: Lennox-Gastaut syndrome
  3. EPIDIOLEX [Suspect]
     Active Substance: CANNABIDIOL
     Indication: Focal dyscognitive seizures
  4. TOPAMAX [Concomitant]
     Active Substance: TOPIRAMATE
     Indication: Product used for unknown indication
  5. ALUMINUM HYDROXIDE\MAGNESIUM CARBONATE [Concomitant]
     Active Substance: ALUMINUM HYDROXIDE\MAGNESIUM CARBONATE
     Indication: Product used for unknown indication
  6. MELATONIN [Concomitant]
     Active Substance: MELATONIN
     Indication: Product used for unknown indication
  7. GABAPENTIN [Concomitant]
     Active Substance: GABAPENTIN
     Indication: Product used for unknown indication
  8. ONFI [Concomitant]
     Active Substance: CLOBAZAM
     Indication: Product used for unknown indication

REACTIONS (1)
  - Death [Fatal]
